FAERS Safety Report 9068368 (Version 1)
Quarter: 2013Q1

REPORT INFORMATION
  Report Type: Spontaneous
  Country: AU (occurrence: AU)
  Receive Date: 20130128
  Receipt Date: 20130128
  Transmission Date: 20140127
  Serious: Yes (Other)
  Sender: FDA-Public Use
  Company Number: AU-ROCHE-1182193

PATIENT
  Age: 64 Year
  Sex: Male

DRUGS (8)
  1. SAQUINAVIR [Suspect]
     Indication: HIV INFECTION
     Route: 065
  2. DIDANOSINE [Suspect]
     Indication: HIV INFECTION
     Route: 065
  3. EFAVIRENZ [Suspect]
     Indication: HIV INFECTION
     Route: 065
  4. EMTRICITABINE [Suspect]
     Indication: HIV INFECTION
     Route: 065
  5. LAMIVUDINE [Suspect]
     Indication: HIV INFECTION
     Route: 065
  6. RALTEGRAVIR [Suspect]
     Indication: HIV INFECTION
     Route: 065
  7. VIRAMUNE [Suspect]
     Indication: HIV INFECTION
     Route: 065
  8. ZIDOVUDINE [Suspect]
     Indication: HIV INFECTION
     Route: 065

REACTIONS (7)
  - Oesophageal varices haemorrhage [Unknown]
  - Portal vein occlusion [Unknown]
  - Hepatic fibrosis [Unknown]
  - Anorectal varices [Unknown]
  - Portal hypertension [Unknown]
  - Intestinal varices [Unknown]
  - Splenomegaly [Unknown]
